FAERS Safety Report 13828009 (Version 1)
Quarter: 2017Q3

REPORT INFORMATION
  Report Type: Spontaneous
  Country: FR (occurrence: FR)
  Receive Date: 20170803
  Receipt Date: 20170803
  Transmission Date: 20171127
  Serious: Yes (Hospitalization)
  Sender: FDA-Public Use
  Company Number: FR-ORION CORPORATION ORION PHARMA-TREX2017-2286

PATIENT
  Age: 48 Year
  Sex: Female

DRUGS (8)
  1. LEVONORGESTREL. [Concomitant]
     Active Substance: LEVONORGESTREL
     Dosage: INTRA-UTERINE CONTRACEPTIVE DEVICE (IUD) WITH LEVONORGESTREL
     Route: 065
  2. ASPIRINE PROTECT [Concomitant]
     Active Substance: ASPIRIN
     Dosage: STRENGTH: 100 MG; AT NOON
     Route: 048
  3. BISOCE [Concomitant]
     Active Substance: BISOPROLOL
     Dosage: MORNING
     Route: 048
  4. ATACAND [Suspect]
     Active Substance: CANDESARTAN CILEXETIL
     Dosage: STRENGTH: 8 MG; LONG-STANDING TREATMENT
     Route: 048
  5. IMETH [Suspect]
     Active Substance: METHOTREXATE SODIUM
     Indication: PSORIATIC ARTHROPATHY
     Dosage: STRENGTH: 10 MG
     Route: 065
     Dates: start: 20170604, end: 20170604
  6. FLUOXETINE HYDROCHLORIDE. [Suspect]
     Active Substance: FLUOXETINE HYDROCHLORIDE
     Indication: DEPRESSION
     Dosage: LONG STANDING TREATMENT
     Route: 048
  7. SKENAN [Concomitant]
     Active Substance: MORPHINE SULFATE
     Dosage: 40 MG MORNING AND EVENING
     Route: 048
  8. ACTISKENAN [Concomitant]
     Active Substance: MORPHINE SULFATE
     Dosage: STRENGTH: 10 MG; 1 OR 2 DOSAGE FORMS
     Route: 048

REACTIONS (1)
  - Stress cardiomyopathy [Recovering/Resolving]

NARRATIVE: CASE EVENT DATE: 20170605
